FAERS Safety Report 8875981 (Version 1)
Quarter: 2012Q4

REPORT INFORMATION
  Report Type: 
  Country: IT (occurrence: IT)
  Receive Date: 20121030
  Receipt Date: 20121030
  Transmission Date: 20130627
  Serious: Yes (Hospitalization)
  Sender: FDA-Public Use
  Company Number: PHHY2012IT096954

PATIENT
  Age: 43 Year
  Sex: Male

DRUGS (5)
  1. MIRTAZAPINE [Suspect]
     Indication: DEPRESSION
     Dosage: 30 mg, daily
     Route: 048
  2. MIRTAZAPINE [Suspect]
     Dosage: 180 mg
     Route: 048
     Dates: start: 20121019, end: 20121019
  3. RIVOTRIL [Concomitant]
  4. EUTIMIL [Concomitant]
  5. DALMADORM [Concomitant]

REACTIONS (5)
  - Drug abuse [Recovering/Resolving]
  - Self injurious behaviour [Recovering/Resolving]
  - Sopor [Recovering/Resolving]
  - Tachycardia [Recovering/Resolving]
  - Overdose [Recovering/Resolving]
